FAERS Safety Report 10103405 (Version 1)
Quarter: 2014Q2

REPORT INFORMATION
  Report Type: Spontaneous
  Country: US (occurrence: US)
  Receive Date: 20140424
  Receipt Date: 20140424
  Transmission Date: 20141212
  Serious: Yes (Other)
  Sender: FDA-Public Use
  Company Number: US-PFIZER INC-2014110492

PATIENT
  Age: 31 Year
  Sex: Female
  Weight: 86 kg

DRUGS (3)
  1. LYRICA [Suspect]
     Indication: FIBROMYALGIA
     Dosage: 50 MG, UNK
     Route: 048
  2. LYRICA [Suspect]
     Dosage: 50 MG, UNK
     Route: 048
  3. LYRICA [Suspect]
     Dosage: 150 MG, 4X/DAY
     Route: 048

REACTIONS (3)
  - Rheumatoid arthritis [Not Recovered/Not Resolved]
  - Hypovitaminosis [Unknown]
  - Blood glucose increased [Unknown]
